FAERS Safety Report 5633676-1 (Version None)
Quarter: 2008Q1

REPORT INFORMATION
  Report Type: 
  Country: None (occurrence: None)
  Receive Date: 20080219
  Receipt Date: 20080109
  Transmission Date: 20080703
  Serious: Yes (Other)
  Sender: FDA-Public Use
  Company Number: 023737

PATIENT
  Sex: Female

DRUGS (3)
  1. MEDROXYPROGESTERONE ACETATE [Suspect]
     Dosage: ORAL
     Route: 048
     Dates: start: 19970101
  2. PROVERA [Suspect]
     Dosage: ORAL
     Route: 048
     Dates: start: 19970101
  3. OGEN [Suspect]
     Dosage: ORAL
     Route: 048
     Dates: start: 19900101

REACTIONS (1)
  - BREAST CANCER [None]
